FAERS Safety Report 20636701 (Version 1)
Quarter: 2022Q1

REPORT INFORMATION
  Report Type: Other
  Country: CN (occurrence: None)
  Receive Date: 20220325
  Receipt Date: 20220325
  Transmission Date: 20220424
  Serious: Yes (Death)
  Sender: FDA-Public Use
  Company Number: CN-ROCHE-1963107

PATIENT
  Sex: Female
  Weight: 49 kg

DRUGS (1)
  1. AVASTIN [Suspect]
     Active Substance: BEVACIZUMAB
     Indication: Non-small cell lung cancer
     Route: 041
     Dates: start: 20170411

REACTIONS (7)
  - General physical health deterioration [Unknown]
  - Pain [Recovering/Resolving]
  - Memory impairment [Unknown]
  - Incoherent [Unknown]
  - Insomnia [Unknown]
  - Asthenia [Unknown]
  - Death [Fatal]

NARRATIVE: CASE EVENT DATE: 20220301
